FAERS Safety Report 9197181 (Version 2)
Quarter: 2013Q2

REPORT INFORMATION
  Report Type: Spontaneous
  Country: JP (occurrence: JP)
  Receive Date: 20130328
  Receipt Date: 20130403
  Transmission Date: 20140414
  Serious: Yes (Other)
  Sender: FDA-Public Use
  Company Number: JP-PFIZER INC-2013097950

PATIENT
  Sex: 0

DRUGS (1)
  1. ZITHROMAC [Suspect]
     Dosage: UNK
     Route: 048

REACTIONS (2)
  - Hallucination, auditory [Recovered/Resolved]
  - Pyrexia [Unknown]
